FAERS Safety Report 25064652 (Version 2)
Quarter: 2025Q2

REPORT INFORMATION
  Report Type: Report from Study
  Country: CO (occurrence: CO)
  Receive Date: 20250311
  Receipt Date: 20250404
  Transmission Date: 20250716
  Serious: Yes (Hospitalization)
  Sender: JOHNSON AND JOHNSON
  Company Number: CO-JNJFOC-20250308611

PATIENT
  Age: 36 Year
  Sex: Male
  Weight: 91 kg

DRUGS (1)
  1. SIMPONI [Suspect]
     Active Substance: GOLIMUMAB
     Indication: Ankylosing spondylitis
     Dosage: DATE OF LAST TREATMENT: 03-JAN-2025
     Route: 058
     Dates: start: 20211223

REACTIONS (4)
  - Infection [Not Recovered/Not Resolved]
  - Autoimmune disorder [Unknown]
  - Abdominal pain [Not Recovered/Not Resolved]
  - Drug ineffective [Unknown]

NARRATIVE: CASE EVENT DATE: 20250223
